FAERS Safety Report 20534455 (Version 6)
Quarter: 2022Q3

REPORT INFORMATION
  Report Type: Report from Study
  Country: CN (occurrence: None)
  Receive Date: 20220302
  Receipt Date: 20220715
  Transmission Date: 20221027
  Serious: Yes (Hospitalization)
  Sender: FDA-Public Use
  Company Number: CN-ROCHE-2971688

PATIENT
  Age: 69 Year
  Sex: Male
  Weight: 72 kg

DRUGS (43)
  1. TIRAGOLUMAB [Suspect]
     Active Substance: TIRAGOLUMAB
     Indication: Small cell lung cancer extensive stage
     Dosage: ON 11/NOV/2021, HE RECEIVED THE MOST RECENT DOSE 600 MG/10 ML OF BLINDED TIRAGOLUMAB PRIOR TO AE/SAE
     Route: 042
     Dates: start: 20210628
  2. ATEZOLIZUMAB [Suspect]
     Active Substance: ATEZOLIZUMAB
     Indication: Small cell lung cancer extensive stage
     Dosage: ON 11/NOV/2021, HE RECEIVED THE MOST RECENT DOSE OF ATEZOLIZUMAB (1200 MG) PRIOR TO AE/SAE
     Route: 042
     Dates: start: 20210628
  3. CARBOPLATIN [Suspect]
     Active Substance: CARBOPLATIN
     Indication: Small cell lung cancer extensive stage
     Dosage: ON 08/SEP/2021, HE RECEIVED THE MOST RECENT DOSE OF CARBOPLATIN( 1200 MG)  PRIOR TO AE/SAE.
     Route: 042
     Dates: start: 20210628
  4. ETOPOSIDE [Suspect]
     Active Substance: ETOPOSIDE
     Indication: Small cell lung cancer extensive stage
     Dosage: Q3W ON DAY 1, 2 AND 3 OF EACH 21-DAY CYCLE ?ON 10/SEP/2021, HE RECEIVED THE MOST RECENT DOSE(187 MG)
     Route: 042
     Dates: start: 20210628
  5. CEFOPERAZONE\TAZOBACTAM SODIUM [Concomitant]
     Active Substance: CEFOPERAZONE\TAZOBACTAM SODIUM
     Route: 042
     Dates: start: 20211203, end: 20211203
  6. CEFOPERAZONE\TAZOBACTAM SODIUM [Concomitant]
     Active Substance: CEFOPERAZONE\TAZOBACTAM SODIUM
     Route: 042
     Dates: start: 20211209, end: 20211221
  7. CODEINE PHOSPHATE [Concomitant]
     Active Substance: CODEINE PHOSPHATE
     Indication: Cough
     Dosage: YES
     Dates: start: 20210630
  8. CODEINE PHOSPHATE [Concomitant]
     Active Substance: CODEINE PHOSPHATE
     Dates: start: 20210720
  9. CODEINE PHOSPHATE [Concomitant]
     Active Substance: CODEINE PHOSPHATE
     Dates: start: 20210809
  10. CODEINE PHOSPHATE [Concomitant]
     Active Substance: CODEINE PHOSPHATE
     Dates: start: 20210818
  11. TOLVAPTAN [Concomitant]
     Active Substance: TOLVAPTAN
     Dates: start: 20210701
  12. BICYCLOL [Concomitant]
     Active Substance: BICYCLOL
     Dates: start: 20210701
  13. BICYCLOL [Concomitant]
     Active Substance: BICYCLOL
     Dates: start: 20210723
  14. BICYCLOL [Concomitant]
     Active Substance: BICYCLOL
     Dates: start: 20210818
  15. BICYCLOL [Concomitant]
     Active Substance: BICYCLOL
     Dates: start: 20211215
  16. PANTOPRAZOLE SODIUM [Concomitant]
     Active Substance: PANTOPRAZOLE SODIUM
     Dates: start: 20210723
  17. HYDROTALCITE [Concomitant]
     Active Substance: HYDROTALCITE
     Dates: start: 20210723
  18. CLOPIDOGREL BISULFATE [Concomitant]
     Active Substance: CLOPIDOGREL BISULFATE
     Dates: start: 20210814
  19. TRAMADOL HYDROCHLORIDE [Concomitant]
     Active Substance: TRAMADOL HYDROCHLORIDE
     Indication: Analgesic therapy
     Dates: start: 20210814
  20. GLYCOSAMINOGLYCANS [Concomitant]
     Active Substance: GLYCOSAMINOGLYCANS
     Dates: start: 20210815
  21. ESOMEPRAZOLE SODIUM [Concomitant]
     Active Substance: ESOMEPRAZOLE SODIUM
     Route: 042
     Dates: start: 20211130, end: 20211130
  22. AMINOPHYLLINE [Concomitant]
     Active Substance: AMINOPHYLLINE
     Indication: Asthma
     Route: 042
     Dates: start: 20211130, end: 20211130
  23. ELTHON [ITOPRIDE HYDROCHLORIDE] [Concomitant]
     Dates: start: 20211201, end: 202112
  24. LIVE COMBINED BACILLUS SUBTILIS AND ENTEROCOCCUS FAECIUM [Concomitant]
     Dates: start: 20211201, end: 202112
  25. ENOXAPARIN [Concomitant]
     Active Substance: ENOXAPARIN
     Dates: start: 20211130, end: 20211211
  26. ENOXAPARIN [Concomitant]
     Active Substance: ENOXAPARIN
     Dates: start: 20211213, end: 20211231
  27. INSULIN NOS [Concomitant]
     Active Substance: INSULIN NOS
     Dates: start: 20211130, end: 20211130
  28. INSULIN NOS [Concomitant]
     Active Substance: INSULIN NOS
     Dates: start: 20211209, end: 20211215
  29. INSULIN NOS [Concomitant]
     Active Substance: INSULIN NOS
     Dates: start: 20211219, end: 20211219
  30. INSULIN NOS [Concomitant]
     Active Substance: INSULIN NOS
     Dates: start: 20211229, end: 20211229
  31. INSULIN NOS [Concomitant]
     Active Substance: INSULIN NOS
     Dates: start: 20211210, end: 20220101
  32. COMPOUND AMINO ACIDS INJECTION (18AA-IX) [Concomitant]
     Dates: start: 20211201, end: 20211201
  33. SODIUM CHLORIDE [Concomitant]
     Active Substance: SODIUM CHLORIDE
     Dates: start: 20211129, end: 20211202
  34. SODIUM CHLORIDE [Concomitant]
     Active Substance: SODIUM CHLORIDE
     Dates: start: 20211203, end: 20211204
  35. SODIUM CHLORIDE [Concomitant]
     Active Substance: SODIUM CHLORIDE
     Dates: start: 20211206, end: 20211206
  36. FUROSEMIDE [Concomitant]
     Active Substance: FUROSEMIDE
     Dates: start: 20211201, end: 20211202
  37. POTASSIUM CHLORIDE [Concomitant]
     Active Substance: POTASSIUM CHLORIDE
     Dates: start: 20211204, end: 20211204
  38. APIDRA [Concomitant]
     Active Substance: INSULIN GLULISINE
     Indication: Hypoglycaemia
     Dates: start: 20211209, end: 20220101
  39. LEVOFLOXACIN [Concomitant]
     Active Substance: LEVOFLOXACIN
     Dates: start: 20211211, end: 20211211
  40. LEVOFLOXACIN [Concomitant]
     Active Substance: LEVOFLOXACIN
     Dates: start: 20211213, end: 20211217
  41. CALCITRIOL [Concomitant]
     Active Substance: CALCITRIOL
     Dates: start: 20211214
  42. PANTOPRAZOLE SODIUM [Concomitant]
     Active Substance: PANTOPRAZOLE SODIUM
     Dates: start: 20211225
  43. RIVAROXABAN [Concomitant]
     Active Substance: RIVAROXABAN
     Dates: start: 20211231

REACTIONS (2)
  - Interstitial lung disease [Not Recovered/Not Resolved]
  - Pulmonary embolism [Not Recovered/Not Resolved]

NARRATIVE: CASE EVENT DATE: 20211130
